FAERS Safety Report 10400976 (Version 2)
Quarter: 2014Q4

REPORT INFORMATION
  Report Type: Report from Study
  Country: RU (occurrence: RU)
  Receive Date: 20140821
  Receipt Date: 20141007
  Transmission Date: 20150528
  Serious: Yes (Disabling, Other)
  Sender: FDA-Public Use
  Company Number: PHHY2014RU103176

PATIENT
  Sex: Female

DRUGS (1)
  1. ACLASTA [Suspect]
     Active Substance: ZOLEDRONIC ACID
     Indication: OSTEOPOROSIS
     Dosage: UNK
     Route: 042
     Dates: start: 20140826

REACTIONS (2)
  - Arthralgia [Not Recovered/Not Resolved]
  - Patella fracture [Recovering/Resolving]
